FAERS Safety Report 12732148 (Version 1)
Quarter: 2016Q3

REPORT INFORMATION
  Report Type: Spontaneous
  Country: US (occurrence: US)
  Receive Date: 20160909
  Receipt Date: 20160909
  Transmission Date: 20161109
  Serious: Yes (Disabling, Other)
  Sender: FDA-Public Use
  Company Number: None

PATIENT
  Age: 33 Year
  Sex: Female
  Weight: 78.75 kg

DRUGS (6)
  1. GENERIC ADDERALL XR [Suspect]
     Active Substance: AMPHETAMINE ASPARTATE\AMPHETAMINE SULFATE\DEXTROAMPHETAMINE SACCHARATE\DEXTROAMPHETAMINE SULFATE
     Indication: ATTENTION DEFICIT/HYPERACTIVITY DISORDER
     Route: 048
     Dates: start: 20160810, end: 20160815
  2. MAGNESIUM [Concomitant]
     Active Substance: MAGNESIUM
  3. SYNTHROID [Concomitant]
     Active Substance: LEVOTHYROXINE SODIUM
  4. ZOLPIDEM [Concomitant]
     Active Substance: ZOLPIDEM\ZOLPIDEM TARTRATE
  5. SOMA [Concomitant]
     Active Substance: CARISOPRODOL
  6. PROTONIX [Concomitant]
     Active Substance: PANTOPRAZOLE SODIUM

REACTIONS (9)
  - Palpitations [None]
  - Fear [None]
  - Nervousness [None]
  - Tachyphrenia [None]
  - Product substitution issue [None]
  - Crying [None]
  - Anxiety [None]
  - Sleep disorder [None]
  - Tremor [None]

NARRATIVE: CASE EVENT DATE: 20160810
